FAERS Safety Report 8103041-6 (Version None)
Quarter: 2012Q1

REPORT INFORMATION
  Report Type: 
  Country: None (occurrence: None)
  Receive Date: 20120201
  Receipt Date: 20120201
  Transmission Date: 20120608
  Serious: Yes (Other)
  Sender: FDA-Public Use
  Company Number: None

PATIENT
  Sex: Female
  Weight: 37.648 kg

DRUGS (2)
  1. KLONOPIN [Suspect]
     Indication: CATATONIA
     Dosage: .25 MG
     Route: 048
     Dates: start: 20040801, end: 20090413
  2. KLONOPIN [Suspect]
     Indication: BIPOLAR DISORDER
     Dosage: .25 MG
     Route: 048
     Dates: start: 20040801, end: 20090413

REACTIONS (9)
  - FOETAL EXPOSURE DURING PREGNANCY [None]
  - SOCIAL PROBLEM [None]
  - BIPOLAR DISORDER [None]
  - PARANOIA [None]
  - DISTURBANCE IN ATTENTION [None]
  - INSOMNIA [None]
  - PREGNANCY [None]
  - STRESS [None]
  - MENTAL IMPAIRMENT [None]
